FAERS Safety Report 11091250 (Version 3)
Quarter: 2020Q1

REPORT INFORMATION
  Report Type: Report from Study
  Country: GR (occurrence: GR)
  Receive Date: 20150505
  Receipt Date: 20200129
  Transmission Date: 20200409
  Serious: Yes (Hospitalization, Other)
  Sender: FDA-Public Use
  Company Number: PHHY2015GR043511

PATIENT
  Age: 75 Year
  Sex: Female
  Weight: 77 kg

DRUGS (1)
  1. GLIVEC [Suspect]
     Active Substance: IMATINIB MESYLATE
     Indication: PRODUCT USED FOR UNKNOWN INDICATION
     Dosage: 400 MG, QD
     Route: 048
     Dates: start: 20140407, end: 20150408

REACTIONS (5)
  - Melaena [Recovered/Resolved]
  - Cholecystitis [Unknown]
  - Anaemia [Recovered/Resolved]
  - Gastrointestinal haemorrhage [Recovered/Resolved]
  - Escherichia infection [Unknown]

NARRATIVE: CASE EVENT DATE: 20150408
